FAERS Safety Report 8062948-9 (Version None)
Quarter: 2012Q1

REPORT INFORMATION
  Report Type: 
  Country: None (occurrence: None)
  Receive Date: 20120123
  Receipt Date: 20120123
  Transmission Date: 20120608
  Serious: No
  Sender: FDA-Public Use
  Company Number: None

PATIENT
  Age: 50 Year
  Sex: Female
  Weight: 68.038 kg

DRUGS (1)
  1. PAROXETINE HCL [Suspect]
     Indication: PANIC DISORDER
     Dosage: 37.5MG
     Route: 048
     Dates: start: 20080701, end: 20111201

REACTIONS (2)
  - DRUG WITHDRAWAL SYNDROME [None]
  - PRODUCT QUALITY ISSUE [None]
